FAERS Safety Report 7277652-4 (Version None)
Quarter: 2011Q1

REPORT INFORMATION
  Report Type: 
  Country: None (occurrence: None)
  Receive Date: 20110207
  Receipt Date: 20110126
  Transmission Date: 20110831
  Serious: Yes (Hospitalization, Other)
  Sender: FDA-Public Use
  Company Number: US-SANOFI-AVENTIS-2011SA004694

PATIENT
  Age: 86 Year
  Sex: Female

DRUGS (8)
  1. DIGOXIN [Concomitant]
  2. LOVENOX [Concomitant]
  3. PROTONIX [Concomitant]
  4. ARIXTRA [Concomitant]
  5. MULTAQ [Suspect]
     Route: 048
     Dates: start: 20110113
  6. IBANDRONATE SODIUM [Concomitant]
  7. LEVOFLOXACIN [Concomitant]
  8. COUMADIN [Concomitant]

REACTIONS (14)
  - CARDIAC FAILURE CONGESTIVE [None]
  - HYPONATRAEMIA [None]
  - RESPIRATORY FAILURE [None]
  - PROTEINURIA [None]
  - RENAL FAILURE ACUTE [None]
  - HYPOTENSION [None]
  - BRADYCARDIA [None]
  - HEPATIC ENZYME INCREASED [None]
  - ATRIAL FIBRILLATION [None]
  - HYPERKALAEMIA [None]
  - RESPIRATORY ALKALOSIS [None]
  - LEUKOCYTOSIS [None]
  - PLEURAL EFFUSION [None]
  - PNEUMONIA ASPIRATION [None]
